FAERS Safety Report 4621528-5 (Version None)
Quarter: 2005Q1

REPORT INFORMATION
  Report Type: 
  Country: None (occurrence: None)
  Receive Date: 20050328
  Receipt Date: 20040301
  Transmission Date: 20050727
  Serious: No
  Sender: FDA-Public Use
  Company Number: 10148

PATIENT
  Age: 52 Year
  Sex: Male

DRUGS (3)
  1. METHOTREXATE [Suspect]
  2. ALL-TRANS RETINOIC ACID [Suspect]
     Dosage: 80 MG
     Dates: start: 20031204, end: 20031218
  3. ALL-TRANS RETINOIC ACID [Suspect]
     Dosage: 80 MG
     Dates: start: 20030904, end: 20040918

REACTIONS (1)
  - APLASIA [None]
